FAERS Safety Report 14516791 (Version 3)
Quarter: 2018Q4

REPORT INFORMATION
  Report Type: Report from Study
  Country: FR (occurrence: FR)
  Receive Date: 20180212
  Receipt Date: 20181231
  Transmission Date: 20190204
  Serious: Yes (Death, Hospitalization, Other)
  Sender: FDA-Public Use
  Company Number: FR-TEVA-2018-FR-858983

PATIENT
  Age: 35 Year
  Sex: Male

DRUGS (10)
  1. BRENTUXIMAB VEDOTIN [Suspect]
     Active Substance: BRENTUXIMAB VEDOTIN
     Route: 042
  2. POLARAMINE [Concomitant]
     Active Substance: DEXCHLORPHENIRAMINE MALEATE
     Indication: HODGKIN^S DISEASE
     Route: 048
     Dates: start: 20180301, end: 20180416
  3. BENDAMUSTINE HYDROCHLORIDE. [Suspect]
     Active Substance: BENDAMUSTINE HYDROCHLORIDE
     Indication: HODGKIN^S DISEASE
     Route: 042
  4. BRENTUXIMAB VEDOTIN [Suspect]
     Active Substance: BRENTUXIMAB VEDOTIN
     Route: 042
     Dates: start: 20160720, end: 20180427
  5. GEMCITABINE [Concomitant]
     Active Substance: GEMCITABINE\GEMCITABINE HYDROCHLORIDE
     Indication: HODGKIN^S DISEASE
     Route: 042
     Dates: start: 20170116, end: 20170817
  6. BRENTUXIMAB VEDOTIN [Suspect]
     Active Substance: BRENTUXIMAB VEDOTIN
     Indication: HODGKIN^S DISEASE
     Route: 042
  7. DOXORUBICIN [Concomitant]
     Active Substance: DOXORUBICIN
     Indication: HODGKIN^S DISEASE
     Route: 042
     Dates: start: 20170116, end: 20170817
  8. BRENTUXIMAB VEDOTIN [Suspect]
     Active Substance: BRENTUXIMAB VEDOTIN
     Route: 042
  9. BRENTUXIMAB VEDOTIN [Suspect]
     Active Substance: BRENTUXIMAB VEDOTIN
     Route: 042
  10. VINORELBINE [Concomitant]
     Active Substance: VINORELBINE\VINORELBINE TARTRATE
     Indication: HODGKIN^S DISEASE
     Route: 042
     Dates: start: 20170116, end: 20170817

REACTIONS (26)
  - General physical health deterioration [Fatal]
  - Anaemia [Fatal]
  - Bladder dilatation [Unknown]
  - Thrombocytopenia [Fatal]
  - Weight increased [Unknown]
  - Weight increased [Unknown]
  - Candida sepsis [Unknown]
  - Cardiac arrest [Fatal]
  - Constipation [Recovered/Resolved]
  - Rash vesicular [Unknown]
  - Hodgkin^s disease [Fatal]
  - Septic shock [Fatal]
  - Oedema [Unknown]
  - Fatigue [Recovered/Resolved]
  - Acarodermatitis [Recovered/Resolved]
  - Diarrhoea [Recovered/Resolved]
  - Weight decreased [Not Recovered/Not Resolved]
  - Off label use [Unknown]
  - Anaemia [Fatal]
  - Swelling [Unknown]
  - Dyspnoea exertional [Unknown]
  - Haematuria [Unknown]
  - Treatment noncompliance [Unknown]
  - Thrombocytopenia [Fatal]
  - Anaemia [Fatal]
  - Respiratory failure [Unknown]

NARRATIVE: CASE EVENT DATE: 20160922
